FAERS Safety Report 15386432 (Version 3)
Quarter: 2019Q1

REPORT INFORMATION
  Report Type: Spontaneous
  Country: JP (occurrence: JP)
  Receive Date: 20180914
  Receipt Date: 20190226
  Transmission Date: 20190417
  Serious: Yes (Hospitalization)
  Sender: FDA-Public Use
  Company Number: PHJP2018JP016132

PATIENT
  Age: 82 Year
  Sex: Male

DRUGS (1)
  1. PAZOPANIB [Suspect]
     Active Substance: PAZOPANIB
     Indication: FIBROUS HISTIOCYTOMA
     Dosage: 400 MG, QD
     Route: 048

REACTIONS (4)
  - Fibrous histiocytoma [Unknown]
  - Malignant neoplasm progression [Unknown]
  - Malaise [Unknown]
  - Cognitive disorder [Unknown]
